FAERS Safety Report 17937257 (Version 1)
Quarter: 2020Q2

REPORT INFORMATION
  Report Type: Spontaneous
  Country: PL (occurrence: PL)
  Receive Date: 20200624
  Receipt Date: 20200624
  Transmission Date: 20200714
  Serious: Yes (Other)
  Sender: FDA-Public Use
  Company Number: PL-TEVA-2020-PL-1790107

PATIENT
  Age: 77 Year
  Weight: 89 kg

DRUGS (4)
  1. CALCIUM FOLINATE [Suspect]
     Active Substance: LEUCOVORIN CALCIUM
     Indication: COLON CANCER
     Dosage: DOSE: 363; DOSE UNIT: NOT SPECIFIED
     Route: 042
     Dates: end: 20170830
  2. FLUOROURACIL. [Suspect]
     Active Substance: FLUOROURACIL
     Dosage: DOSE: 726; DOSE UNIT: NOT SPECIFIED
     Route: 040
     Dates: end: 20170830
  3. IRINOTECAN [Suspect]
     Active Substance: IRINOTECAN
     Indication: COLON CANCER
     Dosage: DOSE: 327; DOSE UNIT: NOT SPECIFIED
     Route: 042
     Dates: end: 20170830
  4. FLUOROURACIL. [Suspect]
     Active Substance: FLUOROURACIL
     Indication: COLON CANCER
     Dosage: ROUTE OF ADMINISTRATION : INTRAVENOUS ROUTE USING AN INFUSION PUMP, 1090 MG
     Route: 042
     Dates: end: 20170830

REACTIONS (1)
  - Neutropenia [Unknown]

NARRATIVE: CASE EVENT DATE: 20170912
